FAERS Safety Report 22141800 (Version 1)
Quarter: 2023Q1

REPORT INFORMATION
  Report Type: Spontaneous
  Country: US (occurrence: None)
  Receive Date: 20230324
  Receipt Date: 20230324
  Transmission Date: 20230418
  Serious: No
  Sender: FDA-Public Use
  Company Number: None

PATIENT
  Age: 70 Year
  Sex: Female
  Weight: 76.2 kg

DRUGS (29)
  1. LETROZOLE [Suspect]
     Active Substance: LETROZOLE
     Indication: Breast cancer female
     Dosage: 2.5MG ONCE DAILY ORAL?
     Route: 048
  2. VERZENIO [Suspect]
     Active Substance: ABEMACICLIB
     Indication: Breast cancer female
     Dosage: 100MG TWICE DAILY ORAL?
     Route: 048
  3. ALBUTEROL [Concomitant]
  4. ASPIRIN [Concomitant]
     Active Substance: ASPIRIN
  5. AUGMENTIN [Concomitant]
     Active Substance: AMOXICILLIN\CLAVULANATE POTASSIUM
  6. CALCIUM [Concomitant]
  7. CARBONATE-VITAMIN D3 [Concomitant]
  8. CELECOXIB [Concomitant]
     Active Substance: CELECOXIB
  9. CETIRIZINE [Concomitant]
     Active Substance: CETIRIZINE HYDROCHLORIDE
  10. CYANOCOBALAMIN [Concomitant]
     Active Substance: CYANOCOBALAMIN
  11. DULOXETINE [Concomitant]
     Active Substance: DULOXETINE
  12. FLUCONAZOLE [Concomitant]
     Active Substance: FLUCONAZOLE
  13. FLUTICASONE [Concomitant]
  14. GABAPENTIN [Concomitant]
  15. GUAIFENESIN [Concomitant]
  16. VITAMIN D3 [Concomitant]
     Active Substance: CHOLECALCIFEROL
  17. VITAMIN E [Concomitant]
     Active Substance: .ALPHA.-TOCOPHEROL
  18. LOSARTAN [Concomitant]
     Active Substance: LOSARTAN
  19. MAGOX [Concomitant]
  20. MONTELUKAST [Concomitant]
     Active Substance: MONTELUKAST SODIUM
  21. MULTIVITAMIN [Concomitant]
  22. OMEPRAZOLE [Concomitant]
     Active Substance: OMEPRAZOLE
  23. PYRIDOXINE [Concomitant]
     Active Substance: PYRIDOXINE
  24. ROSUVASTATIN [Concomitant]
  25. TYHROID PORK [Concomitant]
  26. TIOTROPIUM BROMIDE [Concomitant]
     Active Substance: TIOTROPIUM BROMIDE
  27. VITAMIN D [Concomitant]
     Active Substance: VITAMIN D NOS
  28. VITAMIN E [Concomitant]
     Active Substance: .ALPHA.-TOCOPHEROL
  29. ZOLPIDEM [Concomitant]
     Active Substance: ZOLPIDEM TARTRATE

REACTIONS (2)
  - Disease progression [None]
  - Therapy cessation [None]
